FAERS Safety Report 7344451-4 (Version None)
Quarter: 2011Q1

REPORT INFORMATION
  Report Type: 
  Country: None (occurrence: None)
  Receive Date: 20110310
  Receipt Date: 20110303
  Transmission Date: 20110831
  Serious: Yes (Hospitalization)
  Sender: FDA-Public Use
  Company Number: US-GILEAD-2010-0033104

PATIENT
  Sex: Female

DRUGS (21)
  1. FUROSEMIDE [Concomitant]
  2. MULTI-DAY VITAMINS [Concomitant]
  3. AMILORIDE HYDROCHLORIDE [Concomitant]
  4. LIPITOR [Concomitant]
  5. MAGNESIUM [Concomitant]
  6. DIOVAN [Concomitant]
  7. ZETIA [Concomitant]
  8. ADVAIR DISKUS 100/50 [Concomitant]
  9. PANTOPRAZOLE SODIUM [Concomitant]
  10. CALCIUM +D [Concomitant]
  11. LETAIRIS [Suspect]
     Route: 048
  12. LANTUS [Concomitant]
  13. JANUVIA [Concomitant]
  14. GLIMEPIRIDE [Concomitant]
  15. POTASSIUM CHLORIDE [Concomitant]
  16. FLUTICASONE PROPIONATE [Concomitant]
  17. PAROXETINE HYDROCHLORIDE [Concomitant]
  18. TRAVATAN [Concomitant]
  19. LETAIRIS [Suspect]
     Indication: PULMONARY ARTERIAL HYPERTENSION
     Route: 048
     Dates: start: 20100831, end: 20101025
  20. METFORMIN HYDROCHLORIDE [Concomitant]
  21. LEVOTHROID [Concomitant]

REACTIONS (3)
  - HYPOTENSION [None]
  - TREMOR [None]
  - DIZZINESS [None]
